FAERS Safety Report 8049992-2 (Version None)
Quarter: 2012Q1

REPORT INFORMATION
  Report Type: 
  Country: None (occurrence: None)
  Receive Date: 20120117
  Receipt Date: 20120111
  Transmission Date: 20120608
  Serious: Yes (Congenital Anomaly, Other)
  Sender: FDA-Public Use
  Company Number: US-PFIZER INC-2011308679

PATIENT
  Sex: Male
  Weight: 3.4 kg

DRUGS (1)
  1. ZOLOFT [Suspect]
     Dosage: UNK
     Route: 064

REACTIONS (2)
  - COARCTATION OF THE AORTA [None]
  - MATERNAL EXPOSURE TIMING UNSPECIFIED [None]
